FAERS Safety Report 19451332 (Version 1)
Quarter: 2021Q2

REPORT INFORMATION
  Report Type: Spontaneous
  Country: JP (occurrence: JP)
  Receive Date: 20210623
  Receipt Date: 20210623
  Transmission Date: 20210717
  Serious: Yes (Death, Hospitalization)
  Sender: FDA-Public Use
  Company Number: JP-MTPC-MTPC2021-0015145

PATIENT
  Age: 87 Year
  Sex: Male

DRUGS (2)
  1. RADICUT INJ. 30MG [Suspect]
     Active Substance: EDARAVONE
     Indication: CEREBRAL INFARCTION
     Dosage: UNK
     Route: 065
  2. ALTEPLASE. [Suspect]
     Active Substance: ALTEPLASE
     Indication: CEREBRAL INFARCTION
     Dosage: 0.6 MILLIGRAM/KILOGRAM
     Route: 042

REACTIONS (1)
  - Acute myocardial infarction [Fatal]
